FAERS Safety Report 11976587 (Version 2)
Quarter: 2016Q1

REPORT INFORMATION
  Report Type: Spontaneous
  Country: US (occurrence: US)
  Receive Date: 20160129
  Receipt Date: 20160201
  Transmission Date: 20160526
  Serious: Yes (Other)
  Sender: FDA-Public Use
  Company Number: US-RECKITT BENCKISER HEALTHCARE INT LIMITED-RB-81173-2016

PATIENT
  Age: 69 Year
  Sex: Female

DRUGS (2)
  1. ATIVAN [Concomitant]
     Active Substance: LORAZEPAM
     Indication: PRODUCT USED FOR UNKNOWN INDICATION
     Dosage: UNK, PRN
     Route: 065
  2. MUCINEX [Suspect]
     Active Substance: GUAIFENESIN
     Indication: NASOPHARYNGITIS
     Dosage: 15 ML, BID
     Route: 065
     Dates: start: 20160115, end: 20160117

REACTIONS (1)
  - Blood pressure increased [Recovered/Resolved]

NARRATIVE: CASE EVENT DATE: 20160117
